FAERS Safety Report 7420884-2 (Version None)
Quarter: 2011Q2

REPORT INFORMATION
  Report Type: 
  Country: None (occurrence: None)
  Receive Date: 20110418
  Receipt Date: 20110412
  Transmission Date: 20111010
  Serious: Yes (Hospitalization)
  Sender: FDA-Public Use
  Company Number: A0903053A

PATIENT
  Age: 68 Year
  Sex: Male
  Weight: 92.3 kg

DRUGS (6)
  1. AVAPRO [Concomitant]
  2. ASPIRIN [Concomitant]
  3. AVANDIA [Suspect]
     Indication: DIABETES MELLITUS
     Dosage: 8MG PER DAY
     Route: 048
     Dates: start: 20070501, end: 20090404
  4. GLYBURIDE [Concomitant]
  5. METOPROLOL [Concomitant]
  6. SIMVASTATIN [Concomitant]

REACTIONS (6)
  - CEREBROVASCULAR ACCIDENT [None]
  - ECONOMIC PROBLEM [None]
  - ANHEDONIA [None]
  - INJURY [None]
  - EMOTIONAL DISTRESS [None]
  - FEAR [None]
